FAERS Safety Report 8274065-3 (Version None)
Quarter: 2012Q2

REPORT INFORMATION
  Report Type: 
  Country: None (occurrence: None)
  Receive Date: 20120409
  Receipt Date: 20120328
  Transmission Date: 20120825
  Serious: Yes (Other)
  Sender: FDA-Public Use
  Company Number: USA/USA/12/0023767

PATIENT
  Age: 65 Year
  Sex: Male

DRUGS (2)
  1. ZOLPIDEM [Suspect]
     Indication: INSOMNIA
     Dosage: 10 MG, TAKEN TWO 10 MG TABLETS, UNKNOWN
  2. PREDNISONE TAB [Suspect]
     Indication: POLYMYALGIA RHEUMATICA
     Dosage: 10 MG, 2 PILLS OF 10 MG, UNKNOWN

REACTIONS (11)
  - AUTOMATISM [None]
  - AMNESIA [None]
  - SOMNAMBULISM [None]
  - INSOMNIA [None]
  - MENTAL STATUS CHANGES [None]
  - INCORRECT DOSE ADMINISTERED [None]
  - PARASOMNIA [None]
  - POLYMYALGIA RHEUMATICA [None]
  - WRONG DRUG ADMINISTERED [None]
  - CONFUSIONAL STATE [None]
  - ABNORMAL BEHAVIOUR [None]
